FAERS Safety Report 7446229-X (Version None)
Quarter: 2011Q2

REPORT INFORMATION
  Report Type: 
  Country: None (occurrence: None)
  Receive Date: 20110429
  Receipt Date: 20110425
  Transmission Date: 20111010
  Serious: Yes (Congenital Anomaly)
  Sender: FDA-Public Use
  Company Number: JP-EISAI INC-E2090-01585-SPO-JP

PATIENT

DRUGS (3)
  1. DEPAKENE [Concomitant]
     Indication: DRUG EXPOSURE DURING PREGNANCY
     Dosage: UNKNOWN
     Route: 064
  2. EXCEGRAN [Suspect]
     Indication: DRUG EXPOSURE DURING PREGNANCY
     Dosage: UNKNOWN
     Route: 064
  3. RIVOTRIL [Concomitant]
     Route: 064

REACTIONS (2)
  - DRUG EXPOSURE DURING PREGNANCY [None]
  - AUTISM [None]
